FAERS Safety Report 5881239-5 (Version None)
Quarter: 2008Q3

REPORT INFORMATION
  Report Type: 
  Country: None (occurrence: None)
  Receive Date: 20080912
  Receipt Date: 20080624
  Transmission Date: 20090109
  Serious: No
  Sender: FDA-Public Use
  Company Number: US-ABBOTT-08P-163-0459452-00

PATIENT
  Sex: Female
  Weight: 88.53 kg

DRUGS (17)
  1. HUMIRA [Suspect]
     Indication: CROHN'S DISEASE
     Dosage: 160MG STARTER DOSE
     Route: 058
     Dates: start: 20080623
  2. HUMIRA [Suspect]
     Dosage: 80MG ONCE
     Route: 058
  3. HUMIRA [Suspect]
     Route: 058
  4. MESALAMINE [Concomitant]
     Indication: CROHN'S DISEASE
     Route: 048
  5. LOMITOL [Concomitant]
     Indication: CROHN'S DISEASE
     Route: 048
  6. MERCAPTOPURINE [Concomitant]
     Indication: CROHN'S DISEASE
     Dosage: ON CHART BECAUSE RECENTLY CHANGED
     Route: 048
  7. HYOFCYAMINE [Concomitant]
     Indication: CROHN'S DISEASE
     Route: 048
  8. POTASSIUM CHLORIDE [Concomitant]
     Indication: MINERAL SUPPLEMENTATION
     Route: 048
  9. ATORVASTATIN CALCIUM [Concomitant]
     Indication: BLOOD CHOLESTEROL INCREASED
     Route: 048
  10. RAMIPRIL [Concomitant]
     Indication: HYPERTENSION
     Route: 048
     Dates: start: 20071201
  11. FUROSEMIDE [Concomitant]
     Indication: FLUID RETENTION
     Route: 048
     Dates: start: 20080610
  12. FUROSEMIDE [Concomitant]
     Indication: HYPERTENSION
     Route: 048
     Dates: end: 20080609
  13. VERAPAMIL [Concomitant]
     Indication: HYPERTENSION
     Route: 048
  14. CLOPIDOGREL [Concomitant]
     Indication: STENT PLACEMENT
     Route: 048
     Dates: start: 20020101
  15. VITAMIN B [Concomitant]
     Indication: CROHN'S DISEASE
     Route: 050
     Dates: start: 20060701
  16. ERGOCALCIFEROL [Concomitant]
     Indication: GASTROOESOPHAGEAL REFLUX DISEASE
     Route: 048
     Dates: start: 20080201
  17. LANSOPRAZOLE [Concomitant]
     Indication: GASTROOESOPHAGEAL REFLUX DISEASE
     Route: 048
     Dates: start: 20080401

REACTIONS (1)
  - INJECTION SITE PAIN [None]
